FAERS Safety Report 25748445 (Version 1)
Quarter: 2025Q3

REPORT INFORMATION
  Report Type: Report from Study
  Country: IN (occurrence: IN)
  Receive Date: 20250902
  Receipt Date: 20250902
  Transmission Date: 20251020
  Serious: Yes (Other)
  Sender: ROCHE
  Company Number: IN-ROCHE-10000372030

PATIENT
  Age: 8 Year
  Sex: Male
  Weight: 45 kg

DRUGS (2)
  1. ACTEMRA [Suspect]
     Active Substance: TOCILIZUMAB
     Indication: Still^s disease
     Route: 042
     Dates: start: 20220207, end: 202502
  2. ACTEMRA [Suspect]
     Active Substance: TOCILIZUMAB
     Route: 042
     Dates: start: 202508

REACTIONS (2)
  - Disease recurrence [Recovered/Resolved with Sequelae]
  - Weight increased [Recovered/Resolved with Sequelae]
